FAERS Safety Report 4949540-7 (Version None)
Quarter: 2006Q1

REPORT INFORMATION
  Report Type: 
  Country: None (occurrence: None)
  Receive Date: 20060316
  Receipt Date: 20060306
  Transmission Date: 20060701
  Serious: Yes (Other)
  Sender: FDA-Public Use
  Company Number: 2006032501

PATIENT
  Age: 16 Year
  Sex: Male
  Weight: 63.5036 kg

DRUGS (1)
  1. MECLIZINE [Suspect]
     Dosage: MORE THAN 8 TABLETS ONCE, ORAL
     Route: 048
     Dates: start: 20060305, end: 20060305

REACTIONS (1)
  - HALLUCINATION [None]
